FAERS Safety Report 23592424 (Version 1)
Quarter: 2024Q1

REPORT INFORMATION
  Report Type: Spontaneous
  Country: US (occurrence: US)
  Receive Date: 20240304
  Receipt Date: 20240304
  Transmission Date: 20240410
  Serious: No
  Sender: FDA-Public Use
  Company Number: US-SANDOZ-SDZ2024US022231

PATIENT
  Sex: Female

DRUGS (1)
  1. RECLAST [Suspect]
     Active Substance: ZOLEDRONIC ACID
     Indication: Product used for unknown indication
     Dosage: 5MG/100ML 1LIVI US/ 1 INFUSION
     Route: 065
     Dates: start: 20230612

REACTIONS (3)
  - Peripheral swelling [Unknown]
  - Nodule [Unknown]
  - Osteoarthritis [Unknown]
